FAERS Safety Report 13796610 (Version 1)
Quarter: 2017Q3

REPORT INFORMATION
  Report Type: Report from Study
  Country: US (occurrence: US)
  Receive Date: 20170726
  Receipt Date: 20170726
  Transmission Date: 20171127
  Serious: No
  Sender: FDA-Public Use
  Company Number: US-AMGEN-USASL2017077051

PATIENT
  Age: 70 Year
  Sex: Male

DRUGS (1)
  1. KYPROLIS [Suspect]
     Active Substance: CARFILZOMIB
     Indication: PLASMA CELL MYELOMA
     Dosage: UNK UNK, QWK, ON DAYS 1, 8 AND 15
     Route: 065

REACTIONS (4)
  - Off label use [Unknown]
  - Hypersomnia [Unknown]
  - Red blood cell count decreased [Unknown]
  - Back pain [Unknown]
